FAERS Safety Report 11682057 (Version 1)
Quarter: 2015Q4

REPORT INFORMATION
  Report Type: Spontaneous
  Country: US (occurrence: None)
  Receive Date: 20151028
  Receipt Date: 20151028
  Transmission Date: 20160304
  Serious: Yes (Life-Threatening, Hospitalization, Disabling, Other)
  Sender: FDA-Public Use
  Company Number: None

PATIENT
  Age: 47 Year
  Sex: Male
  Weight: 68.95 kg

DRUGS (16)
  1. ALEVE [Concomitant]
     Active Substance: NAPROXEN SODIUM
  2. MOMETASONE FUROATE CREAM 0.1% [Concomitant]
  3. TEGRETOL [Concomitant]
     Active Substance: CARBAMAZEPINE
  4. WARFARIN [Concomitant]
     Active Substance: WARFARIN
  5. LETAIRIS [Concomitant]
     Active Substance: AMBRISENTAN
  6. DILAUDID [Concomitant]
     Active Substance: HYDROMORPHONE HYDROCHLORIDE
  7. COUMADIN [Concomitant]
     Active Substance: WARFARIN SODIUM
  8. REVATIO [Concomitant]
     Active Substance: SILDENAFIL CITRATE
  9. PREVACID [Concomitant]
     Active Substance: LANSOPRAZOLE
  10. SLOW FE IRON PILL [Concomitant]
  11. LAMICTAL [Concomitant]
     Active Substance: LAMOTRIGINE
  12. CELL-CEPT [Concomitant]
  13. HCTZ [Concomitant]
     Active Substance: HYDROCHLOROTHIAZIDE
  14. VITAMIN D [Concomitant]
     Active Substance: CHOLECALCIFEROL
  15. DOXYXYXLINE HYCLATE [Suspect]
     Active Substance: DOXYCYCLINE HYCLATE
     Indication: DERMATITIS CONTACT
     Route: 048
     Dates: start: 20151013, end: 20151016
  16. PREDNISONE. [Concomitant]
     Active Substance: PREDNISONE

REACTIONS (5)
  - Headache [None]
  - Fatigue [None]
  - Thrombotic thrombocytopenic purpura [None]
  - Chromaturia [None]
  - Nausea [None]

NARRATIVE: CASE EVENT DATE: 20151016
